FAERS Safety Report 12296178 (Version 8)
Quarter: 2016Q3

REPORT INFORMATION
  Report Type: Report from Study
  Country: US (occurrence: US)
  Receive Date: 20160422
  Receipt Date: 20160909
  Transmission Date: 20161109
  Serious: Yes (Hospitalization)
  Sender: FDA-Public Use
  Company Number: US-ASTRAZENECA-2016SE15102

PATIENT
  Age: 74 Year
  Sex: Female

DRUGS (15)
  1. TARCEVA [Concomitant]
     Active Substance: ERLOTINIB HYDROCHLORIDE
     Dates: end: 20160210
  2. LISINOPRIL. [Suspect]
     Active Substance: LISINOPRIL
     Route: 048
  3. LYRICA [Concomitant]
     Active Substance: PREGABALIN
  4. PROTONIX [Concomitant]
     Active Substance: PANTOPRAZOLE SODIUM
  5. TAGRISSO [Suspect]
     Active Substance: OSIMERTINIB
     Indication: LUNG NEOPLASM MALIGNANT
     Route: 048
     Dates: start: 20160212, end: 201604
  6. TAGRISSO [Suspect]
     Active Substance: OSIMERTINIB
     Indication: LUNG CARCINOMA CELL TYPE UNSPECIFIED STAGE I
     Route: 048
     Dates: start: 201604
  7. TAGRISSO [Suspect]
     Active Substance: OSIMERTINIB
     Indication: LUNG NEOPLASM MALIGNANT
     Route: 048
     Dates: start: 201604
  8. PROCHLORPERAZINE MALEATE. [Concomitant]
     Active Substance: PROCHLORPERAZINE MALEATE
  9. FENTANYL. [Concomitant]
     Active Substance: FENTANYL
  10. TAGRISSO [Suspect]
     Active Substance: OSIMERTINIB
     Indication: LUNG CARCINOMA CELL TYPE UNSPECIFIED STAGE I
     Route: 048
     Dates: start: 20160212, end: 201604
  11. MULTIVITAMIN [Concomitant]
     Active Substance: VITAMINS
  12. ZANTAC [Concomitant]
     Active Substance: RANITIDINE HYDROCHLORIDE
     Dosage: TAKES ZOFRAN AND 1 HOUR LATER TAKES ZANTAC
  13. METOPROLOL. [Suspect]
     Active Substance: METOPROLOL
     Route: 065
  14. VITAMIN D [Concomitant]
     Active Substance: CHOLECALCIFEROL
  15. ZOFRAN [Concomitant]
     Active Substance: ONDANSETRON HYDROCHLORIDE

REACTIONS (24)
  - Diarrhoea [Unknown]
  - Urinary tract infection [Unknown]
  - Heart rate irregular [Unknown]
  - Musculoskeletal discomfort [Unknown]
  - Affect lability [Unknown]
  - Clostridium difficile colitis [Unknown]
  - Crying [Unknown]
  - Abdominal discomfort [Unknown]
  - Feeling hot [Unknown]
  - Abdominal pain upper [Unknown]
  - Asthenia [Unknown]
  - Nightmare [Unknown]
  - Accidental overdose [Unknown]
  - Dyspepsia [Unknown]
  - Rash [Unknown]
  - Gastrooesophageal reflux disease [Recovering/Resolving]
  - Infection [Unknown]
  - Therapeutic response unexpected [Unknown]
  - Retching [Unknown]
  - Nail disorder [Unknown]
  - Drug hypersensitivity [Unknown]
  - Nausea [Unknown]
  - Gait disturbance [Unknown]
  - Drug dose omission [Unknown]
